FAERS Safety Report 8623317-3 (Version None)
Quarter: 2012Q3

REPORT INFORMATION
  Report Type: 
  Country: None (occurrence: None)
  Receive Date: 20120827
  Receipt Date: 20120821
  Transmission Date: 20120928
  Serious: Yes (Death)
  Sender: FDA-Public Use
  Company Number: PHHY2012BR072781

PATIENT
  Sex: Female

DRUGS (2)
  1. ZELMAC [Suspect]
     Dosage: UNK UKN, UNK
  2. STARLIX [Suspect]
     Dosage: UNK UKN, UNK

REACTIONS (1)
  - DEATH [None]
